FAERS Safety Report 24884156 (Version 1)
Quarter: 2025Q1

REPORT INFORMATION
  Report Type: Spontaneous
  Country: US (occurrence: None)
  Receive Date: 20250124
  Receipt Date: 20250124
  Transmission Date: 20250408
  Serious: No
  Sender: FDA-CTU
  Company Number: None

PATIENT
  Age: 70 Year
  Sex: Female
  Weight: 51.3 kg

DRUGS (3)
  1. SUTAB [Suspect]
     Active Substance: MAGNESIUM SULFATE\POTASSIUM CHLORIDE\SODIUM SULFATE
     Indication: Colonoscopy
     Route: 048
     Dates: start: 20250120, end: 20250120
  2. VITAMINS [Concomitant]
     Active Substance: VITAMINS
  3. daily calcium [Concomitant]

REACTIONS (11)
  - Hypersensitivity [None]
  - Ear pruritus [None]
  - Feeling hot [None]
  - Erythema [None]
  - Erythema [None]
  - Erythema [None]
  - Pruritus [None]
  - Fear [None]
  - Pain [None]
  - Syncope [None]
  - Heart rate increased [None]

NARRATIVE: CASE EVENT DATE: 20250120
